FAERS Safety Report 9447913 (Version 1)
Quarter: 2013Q3

REPORT INFORMATION
  Report Type: Spontaneous
  Country: JP (occurrence: None)
  Receive Date: 20130806
  Receipt Date: 20130806
  Transmission Date: 20140515
  Serious: No
  Sender: FDA-Public Use
  Company Number: TCI2013A04296

PATIENT
  Age: 56 Year
  Sex: Female

DRUGS (3)
  1. TAKEPRON [Suspect]
     Indication: GASTROOESOPHAGEAL REFLUX DISEASE
     Route: 048
     Dates: start: 20130708, end: 20130711
  2. NORVASC (AMLODIPINE BESILATE) [Concomitant]
  3. DEPAS (ETIZOLAM) [Concomitant]

REACTIONS (1)
  - Eye pain [None]
